FAERS Safety Report 19037787 (Version 2)
Quarter: 2021Q1

REPORT INFORMATION
  Report Type: Spontaneous
  Country: CA (occurrence: CA)
  Receive Date: 20210322
  Receipt Date: 20210331
  Transmission Date: 20210420
  Serious: Yes (Other)
  Sender: FDA-Public Use
  Company Number: CA-MYLANLABS-2021M1016897

PATIENT
  Sex: Male

DRUGS (24)
  1. INFLECTRA                          /01445601/ [Suspect]
     Active Substance: INFLIXIMAB
     Indication: COLITIS ULCERATIVE
     Dosage: 400 MILLIGRAM
     Route: 042
  2. INFLECTRA                          /01445601/ [Suspect]
     Active Substance: INFLIXIMAB
     Dosage: 400 MILLIGRAM
     Route: 042
     Dates: start: 20180914
  3. INFLECTRA                          /01445601/ [Suspect]
     Active Substance: INFLIXIMAB
     Dosage: 400 MILLIGRAM
     Route: 042
     Dates: start: 20181025
  4. INFLECTRA                          /01445601/ [Suspect]
     Active Substance: INFLIXIMAB
     Dosage: 700 MILLIGRAM, 6XW
     Route: 042
     Dates: start: 20190715
  5. INFLECTRA                          /01445601/ [Suspect]
     Active Substance: INFLIXIMAB
     Dosage: 700 MILLIGRAM, 4XW
     Route: 042
     Dates: start: 20200304, end: 20200304
  6. INFLECTRA                          /01445601/ [Suspect]
     Active Substance: INFLIXIMAB
     Dosage: 700 MILLIGRAM, 6XW
     Route: 042
     Dates: start: 20191001
  7. BETNASOL [Concomitant]
     Active Substance: BETAMETHASONE SODIUM PHOSPHATE
     Dosage: UNK
  8. MEZAVANT [Concomitant]
     Active Substance: MESALAMINE
     Dosage: 1.22 GRAM
  9. INFLECTRA                          /01445601/ [Suspect]
     Active Substance: INFLIXIMAB
     Dosage: 400 MILLIGRAM
     Route: 042
     Dates: start: 20181218
  10. INFLECTRA                          /01445601/ [Suspect]
     Active Substance: INFLIXIMAB
     Dosage: 700 MILLIGRAM, 4XW
     Route: 042
     Dates: start: 20200107
  11. AMOXICILLIN. [Concomitant]
     Active Substance: AMOXICILLIN
     Dosage: UNK
  12. INFLECTRA                          /01445601/ [Suspect]
     Active Substance: INFLIXIMAB
     Dosage: 400 MILLIGRAM
     Route: 042
     Dates: start: 20180914, end: 20181218
  13. INFLECTRA                          /01445601/ [Suspect]
     Active Substance: INFLIXIMAB
     Dosage: 700 MILLIGRAM, 4XW
     Route: 042
     Dates: start: 20191209
  14. BUDESONIDE. [Suspect]
     Active Substance: BUDESONIDE
     Indication: PRODUCT USED FOR UNKNOWN INDICATION
     Dosage: UNK
  15. COLIFOAM 10% W/W RECTAL FOAM [Suspect]
     Active Substance: HYDROCORTISONE
     Indication: PRODUCT USED FOR UNKNOWN INDICATION
     Dosage: UNK
  16. INFLECTRA                          /01445601/ [Suspect]
     Active Substance: INFLIXIMAB
     Dosage: 400 MILLIGRAM, 6XW
     Route: 042
     Dates: start: 20190125, end: 20190311
  17. INFLECTRA                          /01445601/ [Suspect]
     Active Substance: INFLIXIMAB
     Dosage: 400 MILLIGRAM, 6XW
     Route: 042
     Dates: start: 20190423, end: 20191001
  18. INFLECTRA                          /01445601/ [Suspect]
     Active Substance: INFLIXIMAB
     Dosage: 700 MILLIGRAM, 6XW
     Route: 042
     Dates: start: 20190604
  19. AVAMYS [Concomitant]
     Active Substance: FLUTICASONE FUROATE
     Dosage: UNK
  20. INFLECTRA                          /01445601/ [Suspect]
     Active Substance: INFLIXIMAB
     Dosage: 700 MILLIGRAM, 6XW
     Route: 042
     Dates: start: 20191001
  21. INFLECTRA                          /01445601/ [Suspect]
     Active Substance: INFLIXIMAB
     Dosage: 700 MILLIGRAM, 4XW
     Route: 042
     Dates: start: 20191114, end: 20200304
  22. INFLECTRA                          /01445601/ [Suspect]
     Active Substance: INFLIXIMAB
     Dosage: 700 MILLIGRAM, 6XW
     Route: 042
     Dates: start: 20190822
  23. INFLECTRA                          /01445601/ [Suspect]
     Active Substance: INFLIXIMAB
     Dosage: 700 MILLIGRAM, 4XW
     Route: 042
     Dates: start: 20200203
  24. CORTIMENT                          /00614601/ [Suspect]
     Active Substance: BUDESONIDE
     Indication: PRODUCT USED FOR UNKNOWN INDICATION
     Dosage: 9 MILLIGRAM, OD

REACTIONS (16)
  - Rhinorrhoea [Unknown]
  - Rectal discharge [Unknown]
  - Haematochezia [Unknown]
  - Intentional product use issue [Unknown]
  - Arthralgia [Unknown]
  - Sputum discoloured [Unknown]
  - Mucous stools [Unknown]
  - Blood pressure fluctuation [Unknown]
  - Infusion site pain [Unknown]
  - Drug ineffective [Unknown]
  - Nasopharyngitis [Unknown]
  - Rectal tenesmus [Unknown]
  - Infusion site oedema [Unknown]
  - Condition aggravated [Unknown]
  - Drug level below therapeutic [Unknown]
  - Inappropriate schedule of product administration [Unknown]
